FAERS Safety Report 4638338-5 (Version None)
Quarter: 2005Q2

REPORT INFORMATION
  Report Type: 
  Country: None (occurrence: None)
  Receive Date: 20050415
  Receipt Date: 20050331
  Transmission Date: 20051028
  Serious: Yes (Death, Disabling)
  Sender: FDA-Public Use
  Company Number: ATO-05-0058

PATIENT
  Age: 72 Year

DRUGS (2)
  1. TRISENOX [Suspect]
     Indication: MULTIPLE MYELOMA
     Dosage: IVI
     Route: 042
  2. SYNTHROID [Concomitant]

REACTIONS (4)
  - BRONCHOPNEUMONIA [None]
  - DISEASE PROGRESSION [None]
  - DRUG TOXICITY [None]
  - NEUROPATHY [None]
